FAERS Safety Report 19625024 (Version 2)
Quarter: 2021Q4

REPORT INFORMATION
  Report Type: Spontaneous
  Country: US (occurrence: US)
  Receive Date: 20210728
  Receipt Date: 20211206
  Transmission Date: 20220303
  Serious: Yes (Other)
  Sender: FDA-Public Use
  Company Number: US-SANOFI-00695080

PATIENT
  Age: 82 Year
  Sex: Male

DRUGS (1)
  1. LANTUS SOLOSTAR [Suspect]
     Active Substance: INSULIN GLARGINE
     Indication: Type 2 diabetes mellitus
     Dosage: 20-30 UNITS
     Route: 065

REACTIONS (5)
  - Neuropathy peripheral [Unknown]
  - Pain in extremity [Unknown]
  - Contusion [Unknown]
  - Blood glucose fluctuation [Unknown]
  - Intentional product misuse [Unknown]
